FAERS Safety Report 20889511 (Version 9)
Quarter: 2023Q4

REPORT INFORMATION
  Report Type: Spontaneous
  Country: CA (occurrence: CA)
  Receive Date: 20220530
  Receipt Date: 20231124
  Transmission Date: 20240109
  Serious: Yes (Hospitalization, Other)
  Sender: FDA-Public Use
  Company Number: CA-CELLTRION INC.-2022CA004104

PATIENT

DRUGS (13)
  1. INFLECTRA [Suspect]
     Active Substance: INFLIXIMAB-DYYB
     Indication: Crohn^s disease
     Dosage: 5 MG/KG, EVERY 6 WEEKS
     Route: 042
  2. INFLECTRA [Suspect]
     Active Substance: INFLIXIMAB-DYYB
     Dosage: 7.5 MG/KG, EVERY 6 WEEKS
     Route: 042
     Dates: start: 20220411, end: 20220411
  3. INFLECTRA [Suspect]
     Active Substance: INFLIXIMAB-DYYB
     Dosage: 7.5 MG/KG, EVERY 6 WEEKS
     Route: 042
     Dates: start: 20220519
  4. INFLECTRA [Suspect]
     Active Substance: INFLIXIMAB-DYYB
     Dosage: 7.5 MG/KG EVERY 6 WEEKS
     Route: 042
     Dates: start: 20220705
  5. INFLECTRA [Suspect]
     Active Substance: INFLIXIMAB-DYYB
     Dosage: 7.5 MG/KG EVERY 6 WEEKS
     Route: 042
     Dates: start: 20220926
  6. INFLECTRA [Suspect]
     Active Substance: INFLIXIMAB-DYYB
     Dosage: 7.5 MG/KG EVERY 6 WEEKS
     Route: 042
     Dates: start: 20221117
  7. INFLECTRA [Suspect]
     Active Substance: INFLIXIMAB-DYYB
     Dosage: 7.5 MG/KG EVERY 6 WEEKS
     Route: 042
     Dates: start: 20230615
  8. INFLECTRA [Suspect]
     Active Substance: INFLIXIMAB-DYYB
     Dosage: 7.5 MG/KG, (435 MG, 9 WEEKS AND 4 DAYS AFTER LAST TREATMENT THAT TOOK PLACE ON 15JUN2023),
     Route: 042
     Dates: start: 20230821
  9. INFLECTRA [Suspect]
     Active Substance: INFLIXIMAB-DYYB
     Dosage: 7.5 MG/KG EVERY 6  WEEKS
     Route: 042
     Dates: start: 20231004
  10. INFLECTRA [Suspect]
     Active Substance: INFLIXIMAB-DYYB
     Dosage: 7.5 MG/KG EVERY 6  WEEKS
     Route: 042
     Dates: start: 20231004
  11. INFLECTRA [Suspect]
     Active Substance: INFLIXIMAB-DYYB
     Dosage: 435 MG, EVERY 6 WEEKS
     Route: 042
     Dates: start: 20231115
  12. LYRICA [Concomitant]
     Active Substance: PREGABALIN
     Dosage: 1 DF, DOSAGE NOT AVAILABLE
     Route: 065
     Dates: start: 2022
  13. LYRICA [Concomitant]
     Active Substance: PREGABALIN
     Dosage: 100 MG
     Route: 048
     Dates: start: 20230531

REACTIONS (14)
  - Panic attack [Recovered/Resolved]
  - Eczema [Recovering/Resolving]
  - Folliculitis [Recovering/Resolving]
  - Gingival graft [Recovered/Resolved]
  - Neck pain [Not Recovered/Not Resolved]
  - Osteoarthritis [Unknown]
  - Disease recurrence [Unknown]
  - COVID-19 [Recovered/Resolved]
  - Erythema [Recovering/Resolving]
  - Pruritus [Recovering/Resolving]
  - Acne [Recovering/Resolving]
  - Off label use [Unknown]
  - Off label use [Unknown]
  - Intentional product use issue [Unknown]

NARRATIVE: CASE EVENT DATE: 20221104
